FAERS Safety Report 8625344-9 (Version None)
Quarter: 2012Q3

REPORT INFORMATION
  Report Type: 
  Country: None (occurrence: None)
  Receive Date: 20120827
  Receipt Date: 20120822
  Transmission Date: 20120928
  Serious: Yes (Other)
  Sender: FDA-Public Use
  Company Number: US-PFIZER INC-2012207410

PATIENT
  Age: 76 Year
  Sex: Female
  Weight: 56.689 kg

DRUGS (10)
  1. LISINOPRIL [Concomitant]
     Indication: HYPERTENSION
     Dosage: 40 MG, DAILY
  2. METOPROLOL TARTRATE [Concomitant]
     Indication: HYPERTENSION
     Dosage: 25 MG, DAILY
  3. GLIPIZIDE [Concomitant]
     Indication: TYPE 2 DIABETES MELLITUS
     Dosage: 10 MG, 2X/DAY
  4. HYDROCHLOROTHIAZIDE [Concomitant]
     Indication: HYPERTENSION
     Dosage: 25 MG, DAILY
  5. CHANTIX [Suspect]
     Dosage: UNK
     Route: 048
     Dates: end: 20120801
  6. METFORMIN HYDROCHLORIDE [Concomitant]
     Indication: TYPE 2 DIABETES MELLITUS
     Dosage: 1000 MG, 2X/DAY
  7. SIMVASTATIN [Concomitant]
     Dosage: 40 MG, DAILY
  8. CHANTIX [Suspect]
     Dosage: 1 MG, 2X/DAY
     Route: 048
  9. IBUPROFEN [Suspect]
     Indication: SPINAL DISORDER
     Dosage: UNK
  10. CHANTIX [Suspect]
     Indication: SMOKING CESSATION THERAPY
     Dosage: 0.5 MG, DAILY
     Route: 048
     Dates: start: 20110101

REACTIONS (6)
  - MOOD ALTERED [None]
  - NAUSEA [None]
  - GASTROINTESTINAL DISORDER [None]
  - DEPRESSED MOOD [None]
  - ABDOMINAL DISCOMFORT [None]
  - NEGATIVE THOUGHTS [None]
